FAERS Safety Report 17130819 (Version 1)
Quarter: 2019Q4

REPORT INFORMATION
  Report Type: Report from Study
  Country: None (occurrence: US)
  Receive Date: 20191209
  Receipt Date: 20191209
  Transmission Date: 20200122
  Serious: Yes (Other)
  Sender: FDA-Public Use
  Company Number: US-ABBVIE-19P-163-3182216-00

PATIENT
  Sex: Male

DRUGS (1)
  1. IMBRUVICA [Suspect]
     Active Substance: IBRUTINIB
     Indication: MANTLE CELL LYMPHOMA
     Route: 048
     Dates: start: 20180513

REACTIONS (5)
  - Emotional distress [Unknown]
  - Decreased activity [Unknown]
  - Atrial fibrillation [Unknown]
  - Epistaxis [Unknown]
  - Skin laceration [Unknown]
